FAERS Safety Report 7291507-0 (Version None)
Quarter: 2011Q1

REPORT INFORMATION
  Report Type: 
  Country: None (occurrence: None)
  Receive Date: 20110202
  Receipt Date: 20110126
  Transmission Date: 20110831
  Serious: Yes (Hospitalization)
  Sender: FDA-Public Use
  Company Number: DSJ-2011-01265

PATIENT
  Age: 78 Year
  Sex: Male

DRUGS (1)
  1. SALIGREN (CEVIMELINE HYDROCHLORIDE) (CAPSULE) (CEVIMELINE HYDROCHLORID [Suspect]
     Indication: DRY MOUTH
     Dosage: 90 MG, PER ORAL
     Route: 048
     Dates: start: 20080201, end: 20100701

REACTIONS (1)
  - INTERSTITIAL LUNG DISEASE [None]
